FAERS Safety Report 5968540-1 (Version None)
Quarter: 2008Q4

REPORT INFORMATION
  Report Type: 
  Country: None (occurrence: None)
  Receive Date: 20081126
  Receipt Date: 20081117
  Transmission Date: 20090506
  Serious: Yes (Hospitalization)
  Sender: FDA-Public Use
  Company Number: BE-ABBOTT-08P-013-0479441-00

PATIENT
  Sex: Female

DRUGS (5)
  1. HUMIRA [Suspect]
     Indication: CROHN'S DISEASE
     Route: 058
  2. OMEPRAZOLE SODIUM [Concomitant]
     Indication: GASTRITIS
     Dates: start: 20080401
  3. BUDESONIDE [Concomitant]
     Indication: GASTRITIS
     Dates: start: 20050601
  4. LORAZEPAM [Concomitant]
     Indication: INSOMNIA
  5. PARACETAMOL [Concomitant]
     Indication: DRUG USE FOR UNKNOWN INDICATION

REACTIONS (1)
  - GASTRITIS [None]
